FAERS Safety Report 8442700-2 (Version None)
Quarter: 2012Q2

REPORT INFORMATION
  Report Type: 
  Country: None (occurrence: None)
  Receive Date: 20120323
  Receipt Date: 20111116
  Transmission Date: 20120825
  Serious: Yes (Disabling, Other)
  Sender: FDA-Public Use
  Company Number: 163-21880-11063496

PATIENT
  Age: 80 Year
  Sex: Male

DRUGS (9)
  1. DEXAMETHASONE [Concomitant]
  2. REVLIMID [Suspect]
     Indication: MULTIPLE MYELOMA
     Dosage: 25 MD, DAILY X 21 DAYS, PO; 15 MG, 1 IN 1 D, PO; 10 MG, 1 IN 1 D, PO; 5 MG, DAILY X21 DAYS, PO
     Route: 048
     Dates: start: 20091212, end: 20100101
  3. REVLIMID [Suspect]
     Indication: MULTIPLE MYELOMA
     Dosage: 25 MD, DAILY X 21 DAYS, PO; 15 MG, 1 IN 1 D, PO; 10 MG, 1 IN 1 D, PO; 5 MG, DAILY X21 DAYS, PO
     Route: 048
     Dates: start: 20110115, end: 20110101
  4. REVLIMID [Suspect]
     Indication: MULTIPLE MYELOMA
     Dosage: 25 MD, DAILY X 21 DAYS, PO; 15 MG, 1 IN 1 D, PO; 10 MG, 1 IN 1 D, PO; 5 MG, DAILY X21 DAYS, PO
     Route: 048
     Dates: start: 20110526, end: 20110101
  5. REVLIMID [Suspect]
     Indication: MULTIPLE MYELOMA
     Dosage: 25 MD, DAILY X 21 DAYS, PO; 15 MG, 1 IN 1 D, PO; 10 MG, 1 IN 1 D, PO; 5 MG, DAILY X21 DAYS, PO
     Route: 048
     Dates: start: 20110804
  6. HYDROCHLOROTHIAZIDE [Concomitant]
  7. SIMVASTATIN [Concomitant]
  8. METFORMIN HCL [Concomitant]
  9. INSULIN [Concomitant]

REACTIONS (1)
  - HAEMOGLOBIN DECREASED [None]
